FAERS Safety Report 16637082 (Version 1)
Quarter: 2019Q3

REPORT INFORMATION
  Report Type: Spontaneous
  Country: US (occurrence: US)
  Receive Date: 20190613
  Receipt Date: 20190613
  Transmission Date: 20191004
  Serious: Yes (Hospitalization)
  Sender: FDA-Public Use
  Company Number: None

PATIENT
  Age: 74 Year
  Sex: Male

DRUGS (4)
  1. BITALIN TAB [Concomitant]
  2. TESTOPEL [Suspect]
     Active Substance: TESTOSTERONE
     Indication: PRODUCT USED FOR UNKNOWN INDICATION
     Dosage: ?          OTHER FREQUENCY:EVERY 4 MONTHS;??
     Route: 058
     Dates: start: 20140820
  3. LOTREL CAP [Concomitant]
  4. METOPROLOL TAB [Concomitant]

REACTIONS (1)
  - Hip arthroplasty [None]

NARRATIVE: CASE EVENT DATE: 20180814
